FAERS Safety Report 24006227 (Version 1)
Quarter: 2024Q2

REPORT INFORMATION
  Report Type: Spontaneous
  Country: US (occurrence: None)
  Receive Date: 20240623
  Receipt Date: 20240623
  Transmission Date: 20240715
  Serious: No
  Sender: FDA-Public Use
  Company Number: None

PATIENT
  Age: 46 Year
  Sex: Female
  Weight: 70 kg

DRUGS (2)
  1. COSMETICS [Suspect]
     Active Substance: COSMETICS
     Indication: Therapeutic skin care topical
     Dates: start: 20240620, end: 20240620
  2. GABAPENTIN [Concomitant]

REACTIONS (5)
  - Swelling face [None]
  - Rash erythematous [None]
  - Eye swelling [None]
  - Periorbital oedema [None]
  - Application site reaction [None]

NARRATIVE: CASE EVENT DATE: 20240621
